FAERS Safety Report 10794689 (Version 2)
Quarter: 2015Q1

REPORT INFORMATION
  Report Type: Spontaneous
  Country: NL (occurrence: NL)
  Receive Date: 20150213
  Receipt Date: 20150219
  Transmission Date: 20150721
  Serious: No
  Sender: FDA-Public Use
  Company Number: ALCN2015NL001018

PATIENT
  Age: 81 Year
  Sex: Female

DRUGS (7)
  1. VEXOL [Suspect]
     Active Substance: RIMEXOLONE
     Indication: PRODUCT USED FOR UNKNOWN INDICATION
     Dosage: 1 GTT, QD
     Route: 047
     Dates: start: 20150115, end: 20150120
  2. PANTOPRAZOL MYLAN [Concomitant]
     Dosage: 40 MG, QD
  3. SELOKOMB ZOC [Concomitant]
     Dosage: 100 MG, QD
  4. TOBRADEX [Concomitant]
     Active Substance: DEXAMETHASONE\TOBRAMYCIN
     Dosage: 1 GTT, BID
     Dates: start: 20150112
  5. SERETIDE [Concomitant]
     Active Substance: FLUTICASONE FUROATE\SALMETEROL XINAFOATE
     Dosage: UNK UNK, QD
  6. SPIRIVA [Concomitant]
     Active Substance: TIOTROPIUM BROMIDE MONOHYDRATE
     Dosage: 18 UG, QD
  7. NORVASC [Concomitant]
     Active Substance: AMLODIPINE BESYLATE
     Dosage: 5 MG, QD

REACTIONS (2)
  - Eye haemorrhage [Unknown]
  - Eye pruritus [Unknown]

NARRATIVE: CASE EVENT DATE: 20150118
